FAERS Safety Report 13466549 (Version 1)
Quarter: 2017Q2

REPORT INFORMATION
  Report Type: Spontaneous
  Country: US (occurrence: US)
  Receive Date: 20170420
  Receipt Date: 20170420
  Transmission Date: 20170830
  Serious: Yes (Death)
  Sender: FDA-Public Use
  Company Number: None

PATIENT
  Age: 57 Year
  Sex: Male

DRUGS (2)
  1. MEKINIST [Suspect]
     Active Substance: TRAMETINIB DIMETHYL SULFOXIDE
     Indication: METASTATIC NEOPLASM
     Route: 048
     Dates: start: 20170127, end: 20170419
  2. TAFINLAR [Suspect]
     Active Substance: DABRAFENIB MESYLATE
     Indication: METASTATIC NEOPLASM
     Route: 048
     Dates: start: 20170127, end: 20170419

REACTIONS (1)
  - Death [None]

NARRATIVE: CASE EVENT DATE: 20170420
